FAERS Safety Report 15450258 (Version 5)
Quarter: 2019Q4

REPORT INFORMATION
  Report Type: Spontaneous
  Country: US (occurrence: US)
  Receive Date: 20181001
  Receipt Date: 20191025
  Transmission Date: 20200122
  Serious: Yes (Other)
  Sender: FDA-Public Use
  Company Number: US-PFIZER INC-2018390459

PATIENT
  Age: 79 Year
  Sex: Female
  Weight: 63 kg

DRUGS (3)
  1. IBRANCE [Suspect]
     Active Substance: PALBOCICLIB
     Indication: BREAST CANCER METASTATIC
     Dosage: 125 MG, CYCLIC, (ONCE A DAY FOR 21 DAYS)
     Route: 048
     Dates: start: 201803
  2. IBRANCE [Suspect]
     Active Substance: PALBOCICLIB
     Dosage: 125 MG, CYCLIC,  (ONCE A DAY FOR 21 DAYS)
     Route: 048
  3. FASLODEX [Concomitant]
     Active Substance: FULVESTRANT
     Indication: BREAST CANCER METASTATIC
     Dosage: UNK, MONTHLY, (SHOT ONCE A MONTH)
     Dates: start: 201803

REACTIONS (2)
  - Cardiac valve disease [Recovered/Resolved]
  - Dysgeusia [Not Recovered/Not Resolved]
